FAERS Safety Report 11915852 (Version 1)
Quarter: 2016Q1

REPORT INFORMATION
  Report Type: Spontaneous
  Country: None (occurrence: None)
  Receive Date: 20160113
  Receipt Date: 20160113
  Transmission Date: 20160526
  Serious: No
  Sender: FDA-Public Use
  Company Number: None

PATIENT
  Age: 26 Year
  Sex: Female
  Weight: 78.02 kg

DRUGS (4)
  1. ALPRAZOLAM ER [Concomitant]
     Active Substance: ALPRAZOLAM
  2. DIVALPROEX SOD ER 250 MG MYLAN [Suspect]
     Active Substance: DIVALPROEX SODIUM
     Indication: DEPRESSION
     Route: 048
     Dates: start: 20160110, end: 20160112
  3. DIVALPROEX SOD ER 250 MG MYLAN [Suspect]
     Active Substance: DIVALPROEX SODIUM
     Indication: BIPOLAR II DISORDER
     Route: 048
     Dates: start: 20160110, end: 20160112
  4. METHYLPENIDATE [Concomitant]

REACTIONS (13)
  - Nausea [None]
  - Pharyngeal oedema [None]
  - Sedation [None]
  - Pruritus [None]
  - Anxiety [None]
  - Mental impairment [None]
  - Vomiting [None]
  - Chest pain [None]
  - Body temperature decreased [None]
  - Speech disorder [None]
  - Confusional state [None]
  - Crying [None]
  - Paranoia [None]

NARRATIVE: CASE EVENT DATE: 20160112
